FAERS Safety Report 5760396-5 (Version None)
Quarter: 2008Q2

REPORT INFORMATION
  Report Type: 
  Country: None (occurrence: None)
  Receive Date: 20080602
  Receipt Date: 20080519
  Transmission Date: 20081010
  Serious: Yes (Hospitalization)
  Sender: FDA-Public Use
  Company Number: 2008AL005195

PATIENT
  Age: 72 Year
  Sex: Male

DRUGS (12)
  1. DIGOXIN [Suspect]
     Indication: CARDIAC DISORDER
     Dosage: 025 DAILY PO
     Route: 048
     Dates: start: 20060101, end: 20070401
  2. MEXILETINE HYDROCHLORIDE [Concomitant]
  3. PENTOXIFYLLINE [Concomitant]
  4. FUROSEMIDE [Concomitant]
  5. COICHICINE [Concomitant]
  6. CARVEDILOL [Concomitant]
  7. SPIRONOLACTONE [Concomitant]
  8. LEVETHYMINE [Concomitant]
  9. ASPIRIN [Concomitant]
  10. INDOCIN [Concomitant]
  11. AMBIEN [Concomitant]
  12. OXYCODONE W /ASAP [Concomitant]

REACTIONS (5)
  - CARDIAC FAILURE CONGESTIVE [None]
  - CONDITION AGGRAVATED [None]
  - HEART RATE DECREASED [None]
  - HYPOTENSION [None]
  - POOR PERIPHERAL CIRCULATION [None]
